FAERS Safety Report 8599577-4 (Version None)
Quarter: 2012Q3

REPORT INFORMATION
  Report Type: 
  Country: None (occurrence: None)
  Receive Date: 20120816
  Receipt Date: 20120628
  Transmission Date: 20120928
  Serious: Yes (Death, Hospitalization)
  Sender: FDA-Public Use
  Company Number: US-ACTELION-A-NJ2011-55172

PATIENT
  Age: 68 Year
  Sex: Female

DRUGS (4)
  1. TRACLEER [Suspect]
     Indication: PULMONARY ARTERIAL HYPERTENSION
     Dosage: UNK
     Route: 048
  2. REVATIO [Concomitant]
  3. TYVASO [Concomitant]
  4. LASIX [Concomitant]

REACTIONS (7)
  - ASTHENIA [None]
  - DEATH [None]
  - WEIGHT INCREASED [None]
  - FATIGUE [None]
  - GAIT DISTURBANCE [None]
  - OEDEMA [None]
  - PULMONARY ARTERIAL HYPERTENSION [None]
